FAERS Safety Report 9477806 (Version 1)
Quarter: 2013Q3

REPORT INFORMATION
  Report Type: Spontaneous
  Country: US (occurrence: US)
  Receive Date: 20130827
  Receipt Date: 20130827
  Transmission Date: 20140515
  Serious: Yes (Other)
  Sender: FDA-Public Use
  Company Number: US-BRISTOL-MYERS SQUIBB COMPANY-19202258

PATIENT
  Age: 82 Year
  Sex: Female
  Weight: 70.29 kg

DRUGS (1)
  1. ELIQUIS [Suspect]
     Dates: start: 20130703

REACTIONS (1)
  - Macular degeneration [Unknown]
